FAERS Safety Report 7562191-3 (Version None)
Quarter: 2011Q2

REPORT INFORMATION
  Report Type: 
  Country: None (occurrence: None)
  Receive Date: 20110620
  Receipt Date: 20110620
  Transmission Date: 20111010
  Serious: Yes (Death)
  Sender: FDA-Public Use
  Company Number: None

PATIENT
  Age: 56 Year
  Sex: Male

DRUGS (6)
  1. METHADONE HCL [Concomitant]
  2. MORPHINE [Concomitant]
  3. ESA [Concomitant]
  4. REVLIMID [Suspect]
     Indication: MULTIPLE MYELOMA
     Dosage: REVLIMID 5MG DAILY X21D/28D ORALLY
     Route: 048
     Dates: start: 20100301, end: 20100801
  5. REVLIMID [Suspect]
     Indication: MULTIPLE MYELOMA
     Dosage: REVLIMID 5MG DAILY X21D/28D ORALLY
     Route: 048
     Dates: start: 20080201, end: 20080901
  6. OXYCODONE HCL [Concomitant]

REACTIONS (1)
  - RESPIRATORY FAILURE [None]
